FAERS Safety Report 17944511 (Version 1)
Quarter: 2020Q2

REPORT INFORMATION
  Report Type: Spontaneous
  Country: US (occurrence: US)
  Receive Date: 20200625
  Receipt Date: 20200625
  Transmission Date: 20200714
  Serious: Yes (Death)
  Sender: FDA-Public Use
  Company Number: US-EMD SERONO-9170732

PATIENT

DRUGS (2)
  1. BAVENCIO [Suspect]
     Active Substance: AVELUMAB
     Indication: PRODUCT USED FOR UNKNOWN INDICATION
  2. INLYTA [Suspect]
     Active Substance: AXITINIB
     Indication: PRODUCT USED FOR UNKNOWN INDICATION

REACTIONS (2)
  - Disease progression [Unknown]
  - Death [Fatal]
